FAERS Safety Report 7331518-X (Version None)
Quarter: 2011Q1

REPORT INFORMATION
  Report Type: 
  Country: None (occurrence: None)
  Receive Date: 20110304
  Receipt Date: 20110301
  Transmission Date: 20110831
  Serious: Yes (Death, Other)
  Sender: FDA-Public Use
  Company Number: JP-SANOFI-AVENTIS-2010SA047342

PATIENT
  Age: 66 Year
  Sex: Female
  Weight: 52 kg

DRUGS (5)
  1. ENDOXAN [Concomitant]
     Route: 042
     Dates: start: 20100507, end: 20100709
  2. TRASTUZUMAB [Concomitant]
     Route: 042
     Dates: start: 20100528, end: 20100709
  3. TRASTUZUMAB [Concomitant]
     Route: 042
     Dates: start: 20100507, end: 20100507
  4. TAXOTERE [Suspect]
     Route: 042
     Dates: start: 20100709, end: 20100709
  5. TAXOTERE [Suspect]
     Route: 042
     Dates: start: 20100507, end: 20100709

REACTIONS (3)
  - CEREBRAL INFARCTION [None]
  - INTERSTITIAL LUNG DISEASE [None]
  - DISSEMINATED INTRAVASCULAR COAGULATION [None]
